FAERS Safety Report 7091562-7 (Version None)
Quarter: 2010Q4

REPORT INFORMATION
  Report Type: 
  Country: None (occurrence: None)
  Receive Date: 20101101
  Receipt Date: 20101015
  Transmission Date: 20110411
  Serious: Yes (Hospitalization, Other)
  Sender: FDA-Public Use
  Company Number: ACO_02776_2010

PATIENT
  Sex: Male

DRUGS (6)
  1. AMPYRA [Suspect]
     Indication: PRODUCT USED FOR UNKNOWN INDICATION
     Dosage: DF
     Dates: start: 20101001, end: 20101005
  2. VITAMIN B-12 [Concomitant]
  3. FOLIC ACID [Concomitant]
  4. ENSURE [Concomitant]
  5. COPAXONE [Concomitant]
  6. METOPROLOL [Concomitant]

REACTIONS (4)
  - CHOKING [None]
  - MULTIPLE SCLEROSIS RELAPSE [None]
  - RETCHING [None]
  - STATUS EPILEPTICUS [None]
